FAERS Safety Report 6601011-8 (Version None)
Quarter: 2010Q1

REPORT INFORMATION
  Report Type: 
  Country: None (occurrence: None)
  Receive Date: 20100225
  Receipt Date: 20100209
  Transmission Date: 20100710
  Serious: Yes (Other)
  Sender: FDA-Public Use
  Company Number: TR-BAYER-201015457GPV

PATIENT
  Age: 35 Year
  Sex: Female
  Weight: 57 kg

DRUGS (1)
  1. MIRENA [Suspect]
     Indication: DRUG USE FOR UNKNOWN INDICATION
     Route: 015
     Dates: start: 20100130

REACTIONS (6)
  - DYSPNOEA [None]
  - ERYTHEMA [None]
  - PALPITATIONS [None]
  - PRURITUS GENERALISED [None]
  - PRURITUS GENITAL [None]
  - VOMITING [None]
